FAERS Safety Report 15191375 (Version 1)
Quarter: 2018Q3

REPORT INFORMATION
  Report Type: Report from Study
  Country: US (occurrence: US)
  Receive Date: 20180724
  Receipt Date: 20180724
  Transmission Date: 20181010
  Serious: No
  Sender: FDA-Public Use
  Company Number: US-AMGEN-USASL2018025996

PATIENT
  Age: 79 Year
  Sex: Male

DRUGS (1)
  1. KYPROLIS [Suspect]
     Active Substance: CARFILZOMIB
     Indication: PLASMA CELL MYELOMA
     Dosage: UNK UNK, 2 TIMES/WK FOR 3 WEEKS PER CYCLE
     Route: 065

REACTIONS (3)
  - Poor quality sleep [Unknown]
  - Fatigue [Not Recovered/Not Resolved]
  - Hunger [Unknown]
